FAERS Safety Report 11115788 (Version 1)
Quarter: 2015Q2

REPORT INFORMATION
  Report Type: Spontaneous
  Country: US (occurrence: None)
  Receive Date: 20150504
  Receipt Date: 20150504
  Transmission Date: 20150821
  Serious: Yes (Hospitalization)
  Sender: FDA-Public Use
  Company Number: 1509411

PATIENT
  Sex: Male

DRUGS (9)
  1. FAMOTIDINE. [Concomitant]
     Active Substance: FAMOTIDINE
  2. METHYLPREDNISONE [Concomitant]
     Active Substance: METHYLPREDNISOLONE
  3. AVASTIN [Suspect]
     Active Substance: BEVACIZUMAB
     Indication: NON-SMALL CELL LUNG CANCER
  4. CARBOPLATIN. [Concomitant]
     Active Substance: CARBOPLATIN
  5. DIPHENHYDRAMINC HCL [Concomitant]
  6. PACLITAXEL. [Concomitant]
     Active Substance: PACLITAXEL
  7. HYDROCOTISONE [Concomitant]
  8. PALONOSETRON HYDROCHLORIDE [Concomitant]
     Active Substance: PALONOSETRON HYDROCHLORIDE
  9. DEXAMETHASONE. [Concomitant]
     Active Substance: DEXAMETHASONE

REACTIONS (6)
  - Hypotension [None]
  - Faeces discoloured [None]
  - Thrombosis [None]
  - Fatigue [None]
  - Hypertension [None]
  - Epistaxis [None]
